FAERS Safety Report 9637367 (Version 3)
Quarter: 2014Q2

REPORT INFORMATION
  Report Type: Report from Study
  Country: VE (occurrence: VE)
  Receive Date: 20131022
  Receipt Date: 20140526
  Transmission Date: 20141212
  Serious: Yes (Hospitalization)
  Sender: FDA-Public Use
  Company Number: PHHY2013VE098457

PATIENT
  Age: 45 Year
  Sex: Female

DRUGS (10)
  1. XOLAIR [Suspect]
     Indication: ASTHMA
     Dosage: 150 MG, PER MONTH
     Route: 058
     Dates: start: 2005
  2. XOLAIR [Suspect]
     Indication: FIBROSIS
     Dosage: 150 MG, PER MONTH
     Route: 058
     Dates: end: 2011
  3. XOLAIR [Suspect]
     Indication: OFF LABEL USE
     Dosage: 150 MG, PER MONTH
     Route: 058
     Dates: start: 20130916
  4. XOLAIR [Suspect]
     Dosage: 150 MG, MONTHLY
     Route: 058
     Dates: end: 201403
  5. FORADIL [Suspect]
     Indication: ASTHMA
     Dosage: 1 UKN, Q12H
     Dates: start: 2006
  6. FORADIL [Suspect]
     Dosage: 400 MG, BID
  7. MIFLONIDE [Suspect]
     Indication: ASTHMA
     Dosage: 1 UKN, Q12H
     Dates: start: 2006
  8. MIFLONIDE [Suspect]
     Dosage: 400 MG, BID
  9. VANNAIR [Concomitant]
     Indication: ASTHMA
     Dosage: 1 DF, DAILY
     Route: 055
     Dates: start: 2006
  10. TEOBID [Concomitant]
     Indication: ASTHMA
     Dosage: 1 UKN, QD
     Route: 048
     Dates: start: 2006

REACTIONS (6)
  - Feeling abnormal [Recovered/Resolved]
  - Interstitial lung disease [Recovered/Resolved]
  - Pyrexia [Not Recovered/Not Resolved]
  - Lung infection [Not Recovered/Not Resolved]
  - Pneumonia [Not Recovered/Not Resolved]
  - Asthma [Recovering/Resolving]
